FAERS Safety Report 5009355-0 (Version None)
Quarter: 2006Q2

REPORT INFORMATION
  Report Type: 
  Country: None (occurrence: None)
  Receive Date: 20060524
  Receipt Date: 20060510
  Transmission Date: 20061013
  Serious: Yes (Death)
  Sender: FDA-Public Use
  Company Number: GBWYE615710MAY06

PATIENT
  Age: 69 Year
  Sex: Female

DRUGS (8)
  1. ENBREL [Suspect]
     Indication: RHEUMATOID ARTHRITIS
     Dosage: UNKNOWN
     Route: 058
     Dates: start: 20030801, end: 20051201
  2. PREDNISOLONE [Concomitant]
     Route: 048
  3. BENDROFLUAZIDE [Concomitant]
     Route: 065
  4. WARFARIN SODIUM [Concomitant]
     Dosage: UNKNOWN
     Route: 065
  5. FOSAMAX [Concomitant]
     Dosage: UNKNOWN
     Route: 065
  6. UNSPECIFIED MEDICATION [Concomitant]
     Dosage: UNKNOWN
     Route: 065
  7. SOTALOL HCL [Concomitant]
     Dosage: UNKNOWN
     Route: 065
  8. ACETAMINOPHEN W/ CODEINE [Concomitant]
     Dosage: UNKNOWN
     Route: 065

REACTIONS (2)
  - DEEP VEIN THROMBOSIS [None]
  - PULMONARY EMBOLISM [None]
